FAERS Safety Report 9539376 (Version 1)
Quarter: 2013Q3

REPORT INFORMATION
  Report Type: Spontaneous
  Country: JP (occurrence: None)
  Receive Date: 20130917
  Receipt Date: 20130917
  Transmission Date: 20140515
  Serious: Yes (Hospitalization)
  Sender: FDA-Public Use
  Company Number: JP-012938

PATIENT
  Age: 31 Year
  Sex: Female

DRUGS (2)
  1. HMG / 06269502/ (HMG) MENOPUR [Suspect]
     Indication: AMENORRHOEA
  2. CLOMID [Suspect]
     Indication: AMENORRHOEA

REACTIONS (4)
  - Heterotopic pregnancy [None]
  - Cyst rupture [None]
  - Abortion spontaneous [None]
  - Exposure during pregnancy [None]
